FAERS Safety Report 8053266-3 (Version None)
Quarter: 2012Q1

REPORT INFORMATION
  Report Type: 
  Country: None (occurrence: None)
  Receive Date: 20120118
  Receipt Date: 20120113
  Transmission Date: 20120608
  Serious: Yes (Hospitalization)
  Sender: FDA-Public Use
  Company Number: JP-ROCHE-1006194

PATIENT
  Sex: Male
  Weight: 47 kg

DRUGS (13)
  1. ACTEMRA [Suspect]
     Route: 041
     Dates: start: 20111031
  2. ACTEMRA [Suspect]
     Route: 041
     Dates: start: 20091124, end: 20100611
  3. ALFAROL [Concomitant]
     Indication: OSTEOPOROSIS PROPHYLAXIS
     Route: 048
     Dates: start: 20111013, end: 20111018
  4. LOSARTAN POTASSIUM [Concomitant]
     Indication: HYPERTENSION
     Route: 048
  5. PREDNISOLONE [Suspect]
     Indication: JUVENILE ARTHRITIS
     Dosage: DOSAGE IS UNCERTAIN.
     Route: 048
  6. ACTEMRA [Suspect]
     Indication: JUVENILE ARTHRITIS
     Route: 041
     Dates: start: 20080610, end: 20080626
  7. ACTEMRA [Suspect]
     Route: 041
     Dates: start: 20100625, end: 20110930
  8. ACTEMRA [Suspect]
     Route: 041
     Dates: start: 20080710, end: 20090821
  9. ALFACALCIDOL [Suspect]
     Indication: OSTEOPOROSIS PROPHYLAXIS
     Route: 048
     Dates: start: 20080101, end: 20111012
  10. PROGRAF [Concomitant]
     Indication: JUVENILE ARTHRITIS
     Route: 048
     Dates: start: 20100302
  11. ACTONEL [Concomitant]
     Indication: OSTEOPOROSIS
     Route: 048
  12. ACTEMRA [Suspect]
     Route: 041
     Dates: start: 20080904, end: 20091112
  13. METHOTREXATE [Concomitant]
     Indication: JUVENILE ARTHRITIS
     Route: 048

REACTIONS (3)
  - CALCULUS URINARY [None]
  - NEPHROLITHIASIS [None]
  - HYDRONEPHROSIS [None]
